FAERS Safety Report 10019295 (Version 2)
Quarter: 2014Q3

REPORT INFORMATION
  Report Type: Spontaneous
  Country: AU (occurrence: AU)
  Receive Date: 20140318
  Receipt Date: 20140709
  Transmission Date: 20150326
  Serious: Yes (Death, Other)
  Sender: FDA-Public Use
  Company Number: AU-NAPPMUNDI-GBR-2014-0017357

PATIENT
  Age: 49 Year
  Sex: Female

DRUGS (5)
  1. OXYCODONE HCL PR TABLET [Suspect]
     Active Substance: OXYCODONE HYDROCHLORIDE
     Indication: CANCER PAIN
     Dosage: 5 MG, NOCTE
     Dates: start: 20121119, end: 20121119
  2. DEXAMETHASONE. [Concomitant]
     Active Substance: DEXAMETHASONE
  3. PARIET [Concomitant]
     Active Substance: RABEPRAZOLE SODIUM
  4. PARACETAMOL [Concomitant]
     Active Substance: ACETAMINOPHEN
  5. MAXOLON [Concomitant]
     Active Substance: METOCLOPRAMIDE HYDROCHLORIDE

REACTIONS (10)
  - Refusal of treatment by patient [Unknown]
  - Agitation [Unknown]
  - Disorientation [Unknown]
  - Eructation [Unknown]
  - Dysarthria [Unknown]
  - Loss of consciousness [Unknown]
  - Confusional state [Unknown]
  - Mobility decreased [Unknown]
  - Restlessness [Unknown]
  - Brain neoplasm malignant [Fatal]

NARRATIVE: CASE EVENT DATE: 20121120
